FAERS Safety Report 4887821-6 (Version None)
Quarter: 2006Q1

REPORT INFORMATION
  Report Type: 
  Country: None (occurrence: None)
  Receive Date: 20060118
  Receipt Date: 20060112
  Transmission Date: 20060701
  Serious: Yes (Death, Hospitalization)
  Sender: FDA-Public Use
  Company Number: T04-USA-01873-01

PATIENT
  Age: 80 Year
  Sex: Male
  Weight: 63.6397 kg

DRUGS (17)
  1. MEMANTINE (OPEN LABEL, PHASE D) (MEMANTINE) [Suspect]
     Indication: DEMENTIA ALZHEIMER'S TYPE
     Dosage: 20 MG QD PO
     Route: 048
     Dates: start: 20040324
  2. MEMANTINE (OPEN LABEL, PHASE C) (MEMANTINE) [Suspect]
     Indication: DEMENTIA ALZHEIMER'S TYPE
     Dosage: 20 MG QD PO
     Route: 048
     Dates: start: 20030312, end: 20040324
  3. MEMANTINE (OPEN LABEL, PHASE B) (MEMANTINE) [Suspect]
     Indication: DEMENTIA ALZHEIMER'S TYPE
     Dosage: 20 MG QD PO
     Route: 048
     Dates: start: 20021023, end: 20030311
  4. MEMANTINE (DOUBLE BLIND, PHASE A) (MEMANTINE) [Suspect]
     Indication: DEMENTIA ALZHEIMER'S TYPE
     Dosage: 2 TABLET BID PO
     Route: 048
     Dates: start: 20020828, end: 20021022
  5. MEMANTINE (UNBLINDED/ MEM-MD-10) (MEMANTINE) [Suspect]
     Indication: DEMENTIA ALZHEIMER'S TYPE
     Dosage: 4 TABLET QD PO
     Route: 048
     Dates: start: 20020312, end: 20020827
  6. VITAMIN E (VEGETABLE OIL) [Concomitant]
  7. GINKGO BILOBA [Concomitant]
  8. ASPIRIN [Concomitant]
  9. METAMUCIL [Concomitant]
  10. MAALOX FAST BLOCKER [Concomitant]
  11. GINSENG [Concomitant]
  12. NEXIUM [Concomitant]
  13. CIPROFLOXACIN XR (CIPROFLOXACIN) [Concomitant]
  14. MACROBID [Concomitant]
  15. DETROL [Concomitant]
  16. FLOMAX [Concomitant]
  17. ASCORBIC ACID [Concomitant]

REACTIONS (8)
  - BLADDER CANCER STAGE III [None]
  - CONSTIPATION [None]
  - DRUG INEFFECTIVE [None]
  - KIDNEY INFECTION [None]
  - MOOD SWINGS [None]
  - STOMACH DISCOMFORT [None]
  - URINARY TRACT INFECTION [None]
  - VISUAL FIELD DEFECT [None]
